FAERS Safety Report 6423317-8 (Version None)
Quarter: 2009Q4

REPORT INFORMATION
  Report Type: 
  Country: None (occurrence: None)
  Receive Date: 20091102
  Receipt Date: 20091023
  Transmission Date: 20100525
  Serious: Yes (Congenital Anomaly)
  Sender: FDA-Public Use
  Company Number: TR-ELI_LILLY_AND_COMPANY-TR200910005813

PATIENT
  Sex: Female

DRUGS (4)
  1. HUMULIN R [Suspect]
     Indication: GESTATIONAL DIABETES
     Dosage: 8 U, EACH MORNING
     Route: 064
     Dates: start: 20090419, end: 20091016
  2. HUMULIN R [Suspect]
     Dosage: 8 U, EACH EVENING
     Route: 064
     Dates: start: 20090419, end: 20091016
  3. HUMULIN N [Suspect]
     Indication: GESTATIONAL DIABETES
     Dosage: 12 U, EACH MORNING
     Route: 064
     Dates: start: 20090419, end: 20091016
  4. HUMULIN N [Suspect]
     Dosage: 8 U, EACH EVENING
     Route: 064
     Dates: start: 20090419, end: 20091016

REACTIONS (2)
  - CLEFT PALATE [None]
  - DRUG EXPOSURE DURING PREGNANCY [None]
